FAERS Safety Report 17355578 (Version 1)
Quarter: 2020Q1

REPORT INFORMATION
  Report Type: Spontaneous
  Country: US (occurrence: US)
  Receive Date: 20200116
  Receipt Date: 20200116
  Transmission Date: 20200409
  Serious: Yes (Hospitalization)
  Sender: FDA-Public Use
  Company Number: None

PATIENT
  Sex: Male

DRUGS (1)
  1. DEXAMETHASONE SODIUM PHOSPH [Suspect]
     Active Substance: DEXAMETHASONE SODIUM PHOSPHATE
     Indication: PANCREATIC CARCINOMA
     Dosage: ?          OTHER FREQUENCY:EVERY14DAYS ;?
     Route: 042
     Dates: start: 20200102

REACTIONS (4)
  - Infection [None]
  - Diabetic ketoacidosis [None]
  - Gastrooesophageal reflux disease [None]
  - Haemoglobin decreased [None]
